FAERS Safety Report 6299890-X (Version None)
Quarter: 2009Q3

REPORT INFORMATION
  Report Type: 
  Country: None (occurrence: None)
  Receive Date: 20090806
  Receipt Date: 20090724
  Transmission Date: 20100115
  Serious: Yes (Other)
  Sender: FDA-Public Use
  Company Number: PHHY2009AU28690

PATIENT
  Sex: Male

DRUGS (2)
  1. CLOZARIL [Suspect]
     Indication: SCHIZOPHRENIA
     Dosage: 25 MG PER DAY
     Route: 048
     Dates: start: 20090525
  2. CLOZARIL [Suspect]
     Dosage: UNK

REACTIONS (10)
  - BLOOD TRIGLYCERIDES INCREASED [None]
  - CARDIAC DISORDER [None]
  - DIABETES MELLITUS [None]
  - GAMMA-GLUTAMYLTRANSFERASE INCREASED [None]
  - HIGH DENSITY LIPOPROTEIN DECREASED [None]
  - METABOLIC DISORDER [None]
  - SINUS TACHYCARDIA [None]
  - THIRST [None]
  - UPPER RESPIRATORY TRACT INFECTION [None]
  - URINARY INCONTINENCE [None]
